FAERS Safety Report 23389464 (Version 1)
Quarter: 2024Q1

REPORT INFORMATION
  Report Type: Report from Study
  Country: CA (occurrence: CA)
  Receive Date: 20240110
  Receipt Date: 20240110
  Transmission Date: 20240410
  Serious: Yes (Other)
  Sender: FDA-Public Use
  Company Number: CA-ABBVIE-5579408

PATIENT
  Sex: Female

DRUGS (14)
  1. ADALIMUMAB [Suspect]
     Active Substance: ADALIMUMAB\ISOPROPYL ALCOHOL
     Indication: Product used for unknown indication
     Route: 058
     Dates: start: 20220207, end: 20221004
  2. ADALIMUMAB [Suspect]
     Active Substance: ADALIMUMAB\ISOPROPYL ALCOHOL
     Route: 058
     Dates: start: 20210105, end: 20220206
  3. ADALIMUMAB [Suspect]
     Active Substance: ADALIMUMAB\ISOPROPYL ALCOHOL
     Route: 058
     Dates: start: 20201229, end: 20201229
  4. RISANKIZUMAB [Suspect]
     Active Substance: RISANKIZUMAB
     Indication: Product used for unknown indication
     Route: 058
     Dates: start: 20221013, end: 20221110
  5. RISANKIZUMAB [Suspect]
     Active Substance: RISANKIZUMAB
     Route: 058
     Dates: start: 20221110
  6. MAXIDEX [Concomitant]
     Active Substance: DEXAMETHASONE
     Indication: Psoriasis
     Dosage: MAXIDEX 0.1%
     Dates: start: 20220314
  7. BREVICON [Concomitant]
     Active Substance: ETHINYL ESTRADIOL\NORETHINDRONE
     Indication: Contraception
     Dosage: 1 PILL
     Dates: start: 20230918
  8. SERTRALINE [Concomitant]
     Active Substance: SERTRALINE HYDROCHLORIDE
     Indication: Depression
     Dates: start: 20220822
  9. Reactine [Concomitant]
     Indication: Rash
     Dates: start: 20210420, end: 20210426
  10. BETAMETHASONE VALERATE [Concomitant]
     Active Substance: BETAMETHASONE VALERATE
     Indication: Rash
     Dosage: CELESTODERM-GLAXAL BASE/?AS NEEDED
     Dates: start: 20210420
  11. CLOBETASOL [Concomitant]
     Active Substance: CLOBETASOL
     Indication: Psoriasis
     Dosage: 1 APPLICATION?AS NEEDED
     Dates: start: 20210422
  12. NITROFURANTOIN [Concomitant]
     Active Substance: NITROFURANTOIN
     Indication: Urinary tract infection
     Dates: start: 20230131, end: 20230205
  13. NITROFURANTOIN [Concomitant]
     Active Substance: NITROFURANTOIN
     Indication: Urinary tract infection
     Dates: start: 20230505, end: 20230510
  14. CEPHALEXIN [Concomitant]
     Active Substance: CEPHALEXIN
     Indication: Skin infection
     Dosage: TIME INTERVAL: 0.33333333 DAYS
     Dates: start: 20210629, end: 20210709

REACTIONS (1)
  - Uterine leiomyoma [Not Recovered/Not Resolved]

NARRATIVE: CASE EVENT DATE: 20231129
